FAERS Safety Report 8780962 (Version 2)
Quarter: 2012Q4

REPORT INFORMATION
  Report Type: 
  Country: ES (occurrence: ES)
  Receive Date: 20120913
  Receipt Date: 20120919
  Transmission Date: 20130627
  Serious: Yes (Hospitalization, Other)
  Sender: FDA-Public Use
  Company Number: ES-ABBOTT-12P-144-0977249-00

PATIENT
  Age: 63 Year
  Sex: Male

DRUGS (1)
  1. SEVORANE [Suspect]
     Indication: SEDATION
     Dosage: perfusion: 6ml/h
     Route: 055

REACTIONS (3)
  - Intracranial pressure increased [Recovered/Resolved]
  - Device interaction [Recovered/Resolved]
  - Off label use [Unknown]
